FAERS Safety Report 9878510 (Version 2)
Quarter: 2014Q1

REPORT INFORMATION
  Report Type: Spontaneous
  Country: PK (occurrence: PK)
  Receive Date: 20140206
  Receipt Date: 20140214
  Transmission Date: 20141002
  Serious: Yes (Life-Threatening, Hospitalization, Other)
  Sender: FDA-Public Use
  Company Number: PK-PFIZER INC-2014032624

PATIENT
  Age: 58 Year
  Sex: Male
  Weight: 58 kg

DRUGS (2)
  1. SUTENT [Suspect]
     Indication: METASTATIC RENAL CELL CARCINOMA
     Dosage: 37.5 MG, 1X/DAY
     Route: 048
     Dates: start: 20140106, end: 20140203
  2. DEXAMETHASONE [Concomitant]
     Indication: DECREASED APPETITE
     Dosage: 4 MG, 2X/DAY
     Route: 048
     Dates: start: 20140106

REACTIONS (1)
  - Myocardial infarction [Recovered/Resolved with Sequelae]
